FAERS Safety Report 10286692 (Version 1)
Quarter: 2014Q3

REPORT INFORMATION
  Report Type: Spontaneous
  Country: US (occurrence: US)
  Receive Date: 20140709
  Receipt Date: 20140709
  Transmission Date: 20150326
  Serious: No
  Sender: FDA-Public Use
  Company Number: US-TEVA-493067USA

PATIENT
  Age: 5 Decade
  Sex: Male

DRUGS (1)
  1. NUVIGIL [Suspect]
     Active Substance: ARMODAFINIL
     Indication: COGNITIVE DISORDER

REACTIONS (2)
  - Off label use [Unknown]
  - Agitation [Unknown]
